FAERS Safety Report 23513711 (Version 3)
Quarter: 2025Q3

REPORT INFORMATION
  Report Type: Spontaneous
  Country: GB (occurrence: GB)
  Receive Date: 20240212
  Receipt Date: 20250829
  Transmission Date: 20251021
  Serious: Yes (Hospitalization)
  Sender: TEVA
  Company Number: GB-SUN PHARMACEUTICAL INDUSTRIES LTD-2024RR-427298

PATIENT
  Age: 63 Year
  Sex: Male
  Weight: 77 kg

DRUGS (19)
  1. CAPECITABINE [Suspect]
     Active Substance: CAPECITABINE
     Indication: Adenocarcinoma gastric
     Dosage: 1000 MILLIGRAM/SQ. METER, Q3W, CYCLE 1, DAY 1
     Route: 048
     Dates: start: 20230817
  2. CAPECITABINE [Suspect]
     Active Substance: CAPECITABINE
     Indication: Adenocarcinoma gastric
     Route: 065
     Dates: start: 20231002
  3. CAPECITABINE [Suspect]
     Active Substance: CAPECITABINE
     Indication: Adenocarcinoma gastric
     Dosage: 1000 MILLIGRAM/SQ. METER, Q3W
     Route: 048
     Dates: start: 20231008
  4. LOPERAMIDE [Concomitant]
     Active Substance: LOPERAMIDE
     Indication: Prophylaxis
     Dosage: 4 MG, BID
     Dates: start: 20230817
  5. DOMPERIDONE [Concomitant]
     Active Substance: DOMPERIDONE
     Indication: Nausea
     Dates: start: 20230817
  6. CHOLECALCIFEROL [Concomitant]
     Active Substance: CHOLECALCIFEROL
     Indication: Vitamin D decreased
     Dosage: 1000 UNITS, QD, 1000 IU DAILY
     Dates: start: 20210101
  7. TISLELIZUMAB [Suspect]
     Active Substance: TISLELIZUMAB
     Indication: Adenocarcinoma gastric
     Dosage: 200 MILLIGRAM, Q3W, CYCLE 1, DAY 1
     Route: 042
     Dates: start: 20230817
  8. TISLELIZUMAB [Suspect]
     Active Substance: TISLELIZUMAB
     Indication: Adenocarcinoma gastric
     Dosage: 200 MG, Q3W, CYCLE 3 DAY 1
     Route: 042
     Dates: start: 20230928
  9. ATORVASTATIN [Concomitant]
     Active Substance: ATORVASTATIN
     Indication: Blood cholesterol increased
     Dates: start: 20180101
  10. ATORVASTATIN [Concomitant]
     Active Substance: ATORVASTATIN
     Indication: Blood cholesterol increased
     Dosage: 20 MG, QD, 20 MG DAILY
     Dates: start: 20180101
  11. COCODAMOL [Concomitant]
     Active Substance: ACETAMINOPHEN\CODEINE PHOSPHATE
     Indication: Pain
     Dates: start: 20230817
  12. OXALIPLATIN [Suspect]
     Active Substance: OXALIPLATIN
     Indication: Adenocarcinoma gastric
     Dosage: 130 MG/M2, Q3W
     Route: 042
     Dates: start: 20230817
  13. OXALIPLATIN [Suspect]
     Active Substance: OXALIPLATIN
     Indication: Adenocarcinoma gastric
     Dosage: 130 MG/M2, Q3W, CYCLE 3 DAY 1
     Route: 042
     Dates: start: 20230928
  14. ZANIDATAMAB [Suspect]
     Active Substance: ZANIDATAMAB
     Indication: Adenocarcinoma gastric
     Dosage: 2400 MILLIGRAM, Q3W
     Route: 042
     Dates: start: 20230817
  15. ZANIDATAMAB [Suspect]
     Active Substance: ZANIDATAMAB
     Indication: Adenocarcinoma gastric
     Dosage: 2400 MILLIGRAM, Q3W, CYCLE 1, DAY 1
     Route: 042
     Dates: start: 20230928
  16. ZANIDATAMAB [Suspect]
     Active Substance: ZANIDATAMAB
     Indication: Adenocarcinoma gastric
     Dosage: 1800 MILLIGRAM, Q3W
     Route: 042
     Dates: start: 20230928
  17. RAMIPRIL [Concomitant]
     Active Substance: RAMIPRIL
     Indication: Hypertension
     Dosage: 10 MG, QD, 10 MG DAILY
     Dates: start: 20180101
  18. RAMIPRIL [Concomitant]
     Active Substance: RAMIPRIL
     Indication: Hypertension
     Dates: start: 20180101
  19. FERROUS SULFATE [Concomitant]
     Active Substance: FERROUS SULFATE
     Indication: Blood iron decreased
     Dosage: 200 MG, BID
     Dates: start: 20230501

REACTIONS (1)
  - Diarrhoea [Recovered/Resolved]

NARRATIVE: CASE EVENT DATE: 20231009
